FAERS Safety Report 8933238 (Version 2)
Quarter: 2012Q4

REPORT INFORMATION
  Report Type: Report from Study
  Country: JP (occurrence: JP)
  Receive Date: 20121128
  Receipt Date: 20121231
  Transmission Date: 20130627
  Serious: Yes (Other)
  Sender: FDA-Public Use
  Company Number: JP-VERTEX PHARMACEUTICAL INC.-2012-025128

PATIENT
  Age: 56 Year
  Sex: Male

DRUGS (6)
  1. VX-950 (TELAPREVIR) [Suspect]
     Indication: CHRONIC HEPATITIS C
     Dosage: 1500 mg, qd
     Route: 048
     Dates: start: 20120925, end: 20121224
  2. RIBAVIRIN [Suspect]
     Indication: CHRONIC HEPATITIS C
     Dosage: 600 mg, qd
     Route: 048
     Dates: start: 20120925, end: 20121015
  3. RIBAVIRIN [Suspect]
     Dosage: 200 mg, qd
     Route: 048
     Dates: start: 20121016
  4. PEGINTRON                          /01543001/ [Suspect]
     Indication: CHRONIC HEPATITIS C
     Dosage: 1.5 ?g, week
     Route: 058
     Dates: start: 20120925, end: 20121106
  5. PEGINTRON                          /01543001/ [Suspect]
     Dosage: .75 ?g, week
     Route: 058
     Dates: start: 20121113
  6. NORVASC [Concomitant]
     Dosage: 5 mg, qd
     Route: 048

REACTIONS (1)
  - Retinal haemorrhage [Recovered/Resolved]
